FAERS Safety Report 25657381 (Version 4)
Quarter: 2025Q3

REPORT INFORMATION
  Report Type: Spontaneous
  Country: CA (occurrence: CA)
  Receive Date: 20250808
  Receipt Date: 20250929
  Transmission Date: 20251021
  Serious: Yes (Other)
  Sender: CELLTRION
  Company Number: CA-CELLTRION INC.-2025CA013380

PATIENT

DRUGS (5)
  1. INFLIXIMAB [Suspect]
     Active Substance: INFLIXIMAB
     Indication: Colitis ulcerative
     Route: 042
     Dates: start: 20250429
  2. INFLIXIMAB [Suspect]
     Active Substance: INFLIXIMAB
     Route: 042
     Dates: start: 20250429
  3. INFLIXIMAB [Suspect]
     Active Substance: INFLIXIMAB
     Dates: start: 20250731
  4. INFLIXIMAB [Suspect]
     Active Substance: INFLIXIMAB
     Dates: start: 20250908
  5. INFLIXIMAB [Suspect]
     Active Substance: INFLIXIMAB
     Route: 042
     Dates: start: 20250429

REACTIONS (5)
  - Haematochezia [Unknown]
  - Condition aggravated [Unknown]
  - Frequent bowel movements [Unknown]
  - Inappropriate schedule of product administration [Unknown]
  - Off label use [Unknown]

NARRATIVE: CASE EVENT DATE: 20250908
